FAERS Safety Report 20369902 (Version 1)
Quarter: 2022Q1

REPORT INFORMATION
  Report Type: Spontaneous
  Country: US (occurrence: None)
  Receive Date: 20220122
  Receipt Date: 20220122
  Transmission Date: 20220424
  Serious: Yes (Hospitalization, Other)
  Sender: FDA-Public Use
  Company Number: None

PATIENT
  Age: 55 Year
  Sex: Female
  Weight: 82 kg

DRUGS (2)
  1. TOCILIZUMAB [Suspect]
     Active Substance: TOCILIZUMAB
     Indication: Still^s disease
     Dosage: OTHER FREQUENCY : Q4WEEKS;?
     Route: 041
     Dates: start: 20210201, end: 20220112
  2. WARFARIN [Concomitant]
     Active Substance: WARFARIN
     Dates: start: 20190101

REACTIONS (1)
  - Intestinal perforation [None]

NARRATIVE: CASE EVENT DATE: 20220122
